FAERS Safety Report 6058527-5 (Version None)
Quarter: 2009Q1

REPORT INFORMATION
  Report Type: 
  Country: None (occurrence: None)
  Receive Date: 20090130
  Receipt Date: 20090120
  Transmission Date: 20090719
  Serious: Yes (Hospitalization, Other)
  Sender: FDA-Public Use
  Company Number: DE-ABBOTT-09P-062-0498958-00

PATIENT
  Sex: Female
  Weight: 70 kg

DRUGS (10)
  1. HUMIRA [Suspect]
     Indication: CROHN'S DISEASE
     Route: 058
     Dates: start: 20080725
  2. PSYLLII SEMEN [Concomitant]
     Indication: DRUG USE FOR UNKNOWN INDICATION
  3. SALOFALK [Concomitant]
     Indication: CROHN'S DISEASE
     Route: 048
     Dates: start: 20040101
  4. DECORTIN [Concomitant]
     Indication: CROHN'S DISEASE
     Dosage: DOSE DECREASED
     Dates: end: 20081101
  5. DECORTIN [Concomitant]
     Route: 048
     Dates: start: 20090115, end: 20090120
  6. DECORTIN [Concomitant]
     Route: 048
     Dates: start: 20090121
  7. TERFENADIN [Concomitant]
     Indication: HYPERSENSITIVITY
     Route: 048
  8. RANITIDINE HCL [Concomitant]
     Indication: PROPHYLAXIS AGAINST GASTROINTESTINAL ULCER
     Route: 048
     Dates: start: 20040101
  9. IDEOS [Concomitant]
     Indication: OSTEOPOROSIS PROPHYLAXIS
     Route: 048
     Dates: start: 20040101
  10. NOVALGIN [Concomitant]
     Indication: PAIN
     Route: 048

REACTIONS (2)
  - CONSTIPATION [None]
  - INTESTINAL STENOSIS [None]
